FAERS Safety Report 7397825-X (Version None)
Quarter: 2011Q2

REPORT INFORMATION
  Report Type: 
  Country: None (occurrence: None)
  Receive Date: 20110401
  Receipt Date: 20110401
  Transmission Date: 20111010
  Serious: Yes (Other)
  Sender: FDA-Public Use
  Company Number: None

PATIENT
  Sex: Female
  Weight: 108 kg

DRUGS (1)
  1. DOPAMINE HCL [Suspect]

REACTIONS (3)
  - DEVICE MALFUNCTION [None]
  - BLOOD PRESSURE SYSTOLIC DECREASED [None]
  - DEVICE OCCLUSION [None]
